FAERS Safety Report 19781795 (Version 4)
Quarter: 2022Q4

REPORT INFORMATION
  Report Type: Spontaneous
  Country: DE (occurrence: DE)
  Receive Date: 20210902
  Receipt Date: 20221108
  Transmission Date: 20230113
  Serious: Yes (Hospitalization, Other)
  Sender: FDA-Public Use
  Company Number: NVSC2021DE192581

PATIENT
  Sex: Female
  Weight: 69 kg

DRUGS (11)
  1. COSENTYX [Suspect]
     Active Substance: SECUKINUMAB
     Indication: Psoriasis
     Dosage: UNK
     Route: 065
  2. HYRIMOZ [Suspect]
     Active Substance: ADALIMUMAB-ADAZ
     Indication: Psoriasis
     Dosage: 40 MG
     Route: 058
     Dates: start: 20190204
  3. AMLODIPINE [Concomitant]
     Active Substance: AMLODIPINE BESYLATE
     Indication: Hypertension
     Dosage: 5 MG, BID
     Route: 048
     Dates: start: 202012
  4. CANDESARTAN [Concomitant]
     Active Substance: CANDESARTAN
     Indication: Hypertension
     Dosage: 16 MG, BID
     Route: 048
     Dates: start: 202012
  5. METAMIZOLE [Concomitant]
     Active Substance: METAMIZOLE
     Indication: Product used for unknown indication
     Dosage: 500 MG, QID (AS NEEDED, UP TO 4X / DAY)
     Route: 048
  6. PROLIA [Concomitant]
     Active Substance: DENOSUMAB
     Indication: Osteoporosis
     Dosage: UNK (EVERY 6 MONTHS)
     Route: 065
  7. ADALIMUMAB [Concomitant]
     Active Substance: ADALIMUMAB
     Indication: Psoriasis
     Dosage: UNK (EVERY 14 DAYS)
     Route: 058
  8. ATORVASTATIN [Concomitant]
     Active Substance: ATORVASTATIN
     Indication: Prophylaxis
     Dosage: UNK, QD (0-0-1)
     Route: 048
     Dates: start: 20211116
  9. DESLORATADINE [Concomitant]
     Active Substance: DESLORATADINE
     Indication: Chronic spontaneous urticaria
     Dosage: UNK, QD (2-0-0)
     Route: 065
     Dates: start: 20220304, end: 2022
  10. DESLORATADINE [Concomitant]
     Active Substance: DESLORATADINE
     Dosage: UNK, QD (0-0-2)
     Route: 065
     Dates: start: 2022
  11. ROSUVASTATIN [Concomitant]
     Active Substance: ROSUVASTATIN
     Indication: Prophylaxis
     Dosage: UNK, QN (0-0-1)
     Route: 065
     Dates: start: 20220701

REACTIONS (50)
  - Coronary artery disease [Not Recovered/Not Resolved]
  - Coronary artery stenosis [Not Recovered/Not Resolved]
  - Angina pectoris [Not Recovered/Not Resolved]
  - Abdominal pain upper [Not Recovered/Not Resolved]
  - Chest discomfort [Not Recovered/Not Resolved]
  - Neck pain [Not Recovered/Not Resolved]
  - Dyspnoea exertional [Recovered/Resolved]
  - Pylorospasm [Recovered/Resolved]
  - Vascular stent stenosis [Recovered/Resolved]
  - Dyspnoea exertional [Recovered/Resolved]
  - Gastrooesophageal reflux disease [Recovered/Resolved]
  - Nausea [Recovered/Resolved]
  - Decreased appetite [Recovered/Resolved]
  - Abdominal distension [Recovered/Resolved]
  - Vomiting projectile [Recovered/Resolved]
  - Cough [Recovered/Resolved]
  - Dyspepsia [Recovered/Resolved]
  - Pyloric stenosis [Not Recovered/Not Resolved]
  - Impaired gastric emptying [Not Recovered/Not Resolved]
  - Constipation [Unknown]
  - Mitral valve incompetence [Not Recovered/Not Resolved]
  - Aortic valve incompetence [Unknown]
  - Tricuspid valve incompetence [Unknown]
  - Haematochezia [Unknown]
  - Sinus tachycardia [Unknown]
  - Ventricular extrasystoles [Unknown]
  - Supraventricular extrasystoles [Unknown]
  - Asthenia [Unknown]
  - Exercise tolerance decreased [Unknown]
  - Abdominal distension [Not Recovered/Not Resolved]
  - Decreased appetite [Not Recovered/Not Resolved]
  - Blood pressure decreased [Not Recovered/Not Resolved]
  - Infrequent bowel movements [Unknown]
  - Gastrooesophageal reflux disease [Not Recovered/Not Resolved]
  - Body fat disorder [Unknown]
  - Blood glucose increased [Unknown]
  - Cystatin C increased [Unknown]
  - Blood immunoglobulin M increased [Unknown]
  - Brain natriuretic peptide increased [Recovering/Resolving]
  - Antithrombin III increased [Unknown]
  - Osteocalcin decreased [Unknown]
  - Blood parathyroid hormone increased [Unknown]
  - Aortic valve sclerosis [Unknown]
  - Diastolic dysfunction [Not Recovered/Not Resolved]
  - Left atrial dilatation [Unknown]
  - Nocturia [Unknown]
  - Blood creatinine increased [Not Recovered/Not Resolved]
  - Mean cell volume decreased [Recovering/Resolving]
  - Mean platelet volume increased [Not Recovered/Not Resolved]
  - Blood lactate dehydrogenase increased [Unknown]

NARRATIVE: CASE EVENT DATE: 20210101
